FAERS Safety Report 4524951-2 (Version None)
Quarter: 2004Q4

REPORT INFORMATION
  Report Type: 
  Country: None (occurrence: None)
  Receive Date: 20041210
  Receipt Date: 20041201
  Transmission Date: 20050328
  Serious: Yes (Death)
  Sender: FDA-Public Use
  Company Number: 2004-BP-13038RO

PATIENT
  Age: 82 Year
  Sex: Female

DRUGS (1)
  1. MORPHINE SULFATE [Suspect]
     Dosage: 8 ML (WRONG DOSE)

REACTIONS (3)
  - ACCIDENTAL OVERDOSE [None]
  - MEDICATION ERROR [None]
  - THERAPEUTIC AGENT TOXICITY [None]
